FAERS Safety Report 20602725 (Version 1)
Quarter: 2022Q1

REPORT INFORMATION
  Report Type: Report from Study
  Country: UA (occurrence: None)
  Receive Date: 20220316
  Receipt Date: 20220316
  Transmission Date: 20220424
  Serious: Yes (Death)
  Sender: FDA-Public Use
  Company Number: UA-ROCHE-3050760

PATIENT
  Age: 74 Year
  Sex: Male
  Weight: 81.2 kg

DRUGS (5)
  1. BEVACIZUMAB [Suspect]
     Active Substance: BEVACIZUMAB
     Indication: Bile duct cancer
     Dosage: MOST RECENT DOSE OF STUDY DRUG PRIOR TO SAE/AE 20/JAN/2022
     Route: 042
     Dates: start: 20210531
  2. ATEZOLIZUMAB [Suspect]
     Active Substance: ATEZOLIZUMAB
     Indication: Bile duct cancer
     Dosage: MOST RECENT DOSE OF STUDY DRUG PRIOR TO AE/SAE: 20/JAN/2022
     Route: 041
     Dates: start: 20210531
  3. CISPLATIN [Suspect]
     Active Substance: CISPLATIN
     Indication: Bile duct cancer
     Dosage: MOST RECENT DOSE OF STUDY DRUG PRIOR TO SAE/AE 04/NOV/2021, 40.6 MG?DAYS 1 AND 8 OF EACH 21-DAY CYCL
     Route: 042
     Dates: start: 20210531
  4. GEMCITABINE [Suspect]
     Active Substance: GEMCITABINE
     Indication: Bile duct cancer
     Dosage: MOST RECENT DOSE OF STUDY DRUG PRIOR TO AE/SAE 04/NOV/2021, 2030 MG?DAYS 1 AND 8 OF EACH 21-DAY CYCL
     Route: 042
     Dates: start: 20210531
  5. RAMIPRIL [Concomitant]
     Active Substance: RAMIPRIL
     Dates: start: 2015

REACTIONS (2)
  - Death [Fatal]
  - Blood creatinine increased [Not Recovered/Not Resolved]

NARRATIVE: CASE EVENT DATE: 20220214
